FAERS Safety Report 8108427-1 (Version None)
Quarter: 2012Q1

REPORT INFORMATION
  Report Type: 
  Country: None (occurrence: None)
  Receive Date: 20120202
  Receipt Date: 20120130
  Transmission Date: 20120608
  Serious: Yes (Death)
  Sender: FDA-Public Use
  Company Number: PHEH2012US002608

PATIENT
  Sex: Male

DRUGS (4)
  1. LORTAB [Suspect]
  2. ALOXI [Suspect]
  3. COMPAZINE [Suspect]
  4. ZOMETA [Suspect]

REACTIONS (1)
  - DEATH [None]
